FAERS Safety Report 20430684 (Version 1)
Quarter: 2022Q1

REPORT INFORMATION
  Report Type: Report from Study
  Country: CA (occurrence: CA)
  Receive Date: 20220204
  Receipt Date: 20220204
  Transmission Date: 20220423
  Serious: Yes (Hospitalization)
  Sender: FDA-Public Use
  Company Number: CA-SERVIER-S21001718

PATIENT

DRUGS (8)
  1. PEGASPARGASE [Suspect]
     Active Substance: PEGASPARGASE
     Indication: Acute lymphocytic leukaemia
     Dosage: 2500 IU/M?, DAYS 6 OF INFUSION 1A
     Route: 042
     Dates: start: 20210108
  2. VINCRISTINE SULFATE [Suspect]
     Active Substance: VINCRISTINE SULFATE
     Indication: Acute lymphocytic leukaemia
     Dosage: 1.5 MG/M?, ON DAYS 4, 11, 18 AND 25 OF INDUCTION 1A
     Route: 042
     Dates: start: 20210106, end: 20210127
  3. DEXAMETHASONE SODIUM SUCCINATE [Suspect]
     Active Substance: DEXAMETHASONE SODIUM SUCCINATE
     Indication: Acute lymphocytic leukaemia
     Dosage: 6 MG/M?, ON DAYS 4 TO 18 OF INDUCTION 1A
     Route: 048
     Dates: start: 20210103, end: 20210119
  4. CYTARABINE [Suspect]
     Active Substance: CYTARABINE
     Indication: Acute lymphocytic leukaemia
     Dosage: 40 MG, ON DAY 1 OF INDUCTION 1A
     Route: 037
     Dates: start: 20210103, end: 20210103
  5. IMATINIB MESYLATE [Suspect]
     Active Substance: IMATINIB MESYLATE
     Indication: Acute lymphocytic leukaemia
     Dosage: 340 MG/M?, ON DAYS 7 TO 32 OF INDUCTION 1A
     Route: 048
     Dates: start: 20210109, end: 20210128
  6. DEXRAZOXANE [Suspect]
     Active Substance: DEXRAZOXANE
     Indication: Acute lymphocytic leukaemia
     Dosage: 300 MG/M?, ON DAYS 11 AND 12 OF INDUCTION 1A
     Route: 042
     Dates: start: 20210111, end: 20210112
  7. DOXORUBICIN HYDROCHLORIDE [Suspect]
     Active Substance: DOXORUBICIN HYDROCHLORIDE
     Indication: Acute lymphocytic leukaemia
     Dosage: 30 MG/M?, ON DAYS 11 AND 12 OF INDUCTION 1A
     Route: 042
     Dates: start: 20210111, end: 20210112
  8. PREDNISONE [Suspect]
     Active Substance: PREDNISONE
     Indication: Acute lymphocytic leukaemia
     Dosage: 60 MG/M?, DAYS 18 TO 32 OF INDUCTION 1A
     Route: 048
     Dates: start: 20210120, end: 20210128

REACTIONS (4)
  - Hypocalcaemia [Not Recovered/Not Resolved]
  - Pleural effusion [Recovering/Resolving]
  - Blood culture positive [Not Recovered/Not Resolved]
  - Posterior reversible encephalopathy syndrome [Not Recovered/Not Resolved]

NARRATIVE: CASE EVENT DATE: 20210128
